FAERS Safety Report 7656502-8 (Version None)
Quarter: 2011Q3

REPORT INFORMATION
  Report Type: 
  Country: None (occurrence: None)
  Receive Date: 20110804
  Receipt Date: 20100902
  Transmission Date: 20111222
  Serious: No
  Sender: FDA-Public Use
  Company Number: US-BAUSCH-2010BL004979

PATIENT
  Age: 52 Year
  Sex: Male

DRUGS (3)
  1. BOSTON ADVANCE [Concomitant]
  2. RENU RE-WETTING DROPS [Concomitant]
  3. OPCON-A [Suspect]
     Indication: EYE IRRITATION
     Route: 047
     Dates: start: 20100830, end: 20100901

REACTIONS (3)
  - DRUG ADMINISTRATION ERROR [None]
  - INSTILLATION SITE PAIN [None]
  - INCORRECT STORAGE OF DRUG [None]
